FAERS Safety Report 20363784 (Version 7)
Quarter: 2023Q2

REPORT INFORMATION
  Report Type: Report from Study
  Country: CA (occurrence: CA)
  Receive Date: 20220121
  Receipt Date: 20230501
  Transmission Date: 20230722
  Serious: Yes (Hospitalization, Other)
  Sender: FDA-Public Use
  Company Number: CA-TAKEDA-2022TUS003195

PATIENT
  Age: 42 Year
  Sex: Male

DRUGS (6)
  1. VEDOLIZUMAB [Suspect]
     Active Substance: VEDOLIZUMAB
     Indication: Crohn^s disease
     Dosage: 300 MILLIGRAM
     Route: 042
     Dates: start: 20210429
  2. VEDOLIZUMAB [Suspect]
     Active Substance: VEDOLIZUMAB
     Dosage: 300 MILLIGRAM, Q4WEEKS
     Route: 042
     Dates: start: 20220124
  3. VEDOLIZUMAB [Suspect]
     Active Substance: VEDOLIZUMAB
     Dosage: 300 MILLIGRAM, Q4WEEKS
     Route: 042
  4. VEDOLIZUMAB [Suspect]
     Active Substance: VEDOLIZUMAB
     Dosage: 300 MILLIGRAM, Q4WEEKS
     Route: 042
  5. VEDOLIZUMAB [Suspect]
     Active Substance: VEDOLIZUMAB
     Dosage: 300 MILLIGRAM, Q4WEEKS
     Route: 042
  6. VEDOLIZUMAB [Suspect]
     Active Substance: VEDOLIZUMAB
     Dosage: 300 MILLIGRAM, Q4WEEKS
     Route: 042

REACTIONS (15)
  - Crohn^s disease [Unknown]
  - Intestinal obstruction [Unknown]
  - Abdominal discomfort [Unknown]
  - Gastrointestinal pain [Unknown]
  - Hernia [Unknown]
  - Dyschezia [Unknown]
  - Gastrointestinal motility disorder [Unknown]
  - Productive cough [Unknown]
  - Weight decreased [Not Recovered/Not Resolved]
  - Drug ineffective [Unknown]
  - Abdominal pain [Unknown]
  - Rhinorrhoea [Unknown]
  - Decreased appetite [Unknown]
  - Headache [Unknown]
  - Off label use [Unknown]

NARRATIVE: CASE EVENT DATE: 20211215
